FAERS Safety Report 9203562 (Version 2)
Quarter: 2013Q3

REPORT INFORMATION
  Report Type: Spontaneous
  Country: JP (occurrence: JP)
  Receive Date: 20130402
  Receipt Date: 20130718
  Transmission Date: 20140515
  Serious: Yes (Hospitalization, Other)
  Sender: FDA-Public Use
  Company Number: PHHY2013JP030716

PATIENT
  Age: 33 Year
  Sex: Female
  Weight: 65 kg

DRUGS (2)
  1. VOLTAREN SR [Suspect]
     Indication: BACK PAIN
     Dosage: 37.5 MG, BID
     Route: 048
     Dates: start: 20130309, end: 20130315
  2. FAMOTIDINE [Concomitant]
     Indication: BACK PAIN
     Dosage: 40 MG, UNK
     Route: 048
     Dates: start: 20130309, end: 20130315

REACTIONS (7)
  - Cholangitis [Not Recovered/Not Resolved]
  - Colitis [Unknown]
  - Pyrexia [Recovered/Resolved]
  - Drug-induced liver injury [Recovering/Resolving]
  - Malaise [Unknown]
  - Abdominal pain upper [Unknown]
  - Abdominal tenderness [Unknown]
